FAERS Safety Report 9613715 (Version 1)
Quarter: 2013Q4

REPORT INFORMATION
  Report Type: Report from Study
  Country: US (occurrence: US)
  Receive Date: 20131010
  Receipt Date: 20131010
  Transmission Date: 20140711
  Serious: Yes (Hospitalization)
  Sender: FDA-Public Use
  Company Number: US-ABBVIE-13P-163-1153830-00

PATIENT
  Age: 35 Year
  Sex: Female

DRUGS (6)
  1. HUMIRA [Suspect]
     Indication: CROHN^S DISEASE
     Dates: start: 2003, end: 2007
  2. HUMIRA [Suspect]
  3. KLONOPIN [Concomitant]
     Indication: ANXIETY
     Dosage: AS NEEDED
  4. TRAMADOL [Concomitant]
     Indication: ABDOMINAL PAIN
     Dosage: 50 MG, 1-2 TABS EVERY 6 HOURS
  5. CYMBALTA [Concomitant]
     Indication: ANXIETY
     Dosage: 50 MG DAILY
  6. VITAMIN B12 [Concomitant]
     Indication: PRODUCT USED FOR UNKNOWN INDICATION
     Dosage: EVERY MONTH
     Route: 058

REACTIONS (10)
  - Pain [Recovered/Resolved]
  - Pericarditis [Recovered/Resolved]
  - Pneumonia [Recovered/Resolved]
  - Ankylosing spondylitis [Unknown]
  - Anxiety [Unknown]
  - Rheumatoid arthritis [Unknown]
  - Abdominal distension [Unknown]
  - Cushing^s syndrome [Unknown]
  - Urinary tract infection [Unknown]
  - Injection site pain [Recovered/Resolved]
